FAERS Safety Report 23998235 (Version 1)
Quarter: 2024Q2

REPORT INFORMATION
  Report Type: Report from Study
  Country: US (occurrence: US)
  Receive Date: 20240621
  Receipt Date: 20240621
  Transmission Date: 20240716
  Serious: Yes (Hospitalization)
  Sender: FDA-Public Use
  Company Number: US-TAKEDA-2024TUS060040

PATIENT
  Sex: Female

DRUGS (1)
  1. FRUQUINTINIB [Suspect]
     Active Substance: FRUQUINTINIB
     Indication: Colon cancer
     Dosage: 5 MILLIGRAM, QD
     Route: 048

REACTIONS (6)
  - Nausea [Unknown]
  - Memory impairment [Unknown]
  - Constipation [Unknown]
  - Amnesia [Unknown]
  - Confusional state [Unknown]
  - Dizziness [Unknown]
